FAERS Safety Report 21642314 (Version 4)
Quarter: 2023Q2

REPORT INFORMATION
  Report Type: Spontaneous
  Country: JP (occurrence: JP)
  Receive Date: 20221125
  Receipt Date: 20230406
  Transmission Date: 20230722
  Serious: Yes (Hospitalization, Other)
  Sender: FDA-Public Use
  Company Number: JP-ZAMBON-202202499COR

PATIENT
  Age: 73 Year
  Sex: Male

DRUGS (20)
  1. SAFINAMIDE [Suspect]
     Active Substance: SAFINAMIDE
     Indication: Parkinson^s disease
     Route: 048
     Dates: start: 20210416, end: 20220620
  2. SAFINAMIDE [Suspect]
     Active Substance: SAFINAMIDE
     Dates: start: 20220621, end: 20220816
  3. SODIUM CHLORIDE [Concomitant]
     Active Substance: SODIUM CHLORIDE
     Indication: Inappropriate antidiuretic hormone secretion
     Dosage: 6 G
     Dates: start: 20220705
  4. FOLIC ACID [Concomitant]
     Active Substance: FOLIC ACID
     Indication: Anaemia
     Dosage: 15 MG
     Dates: start: 20220713, end: 20220823
  5. FLAGYL [Concomitant]
     Active Substance: METRONIDAZOLE\METRONIDAZOLE HYDROCHLORIDE
     Indication: Lung abscess
     Dosage: 1500 MG
     Dates: start: 20220720, end: 20220907
  6. POLAPREZINC [Concomitant]
     Active Substance: POLAPREZINC
     Indication: Anaemia
     Dosage: 150 MG
     Dates: start: 20220713, end: 20220823
  7. MOSAPRIDE CITRATE DIHYDRATE [Concomitant]
     Active Substance: MOSAPRIDE CITRATE DIHYDRATE
     Indication: Ileus
     Dosage: 15 MG
     Dates: start: 20220712, end: 20220823
  8. CARBIDOPA\LEVODOPA [Concomitant]
     Active Substance: CARBIDOPA\LEVODOPA
     Indication: Parkinson^s disease
     Dosage: 600 MG
     Dates: start: 20200221
  9. AMBROXOL HYDROCHLORIDE [Concomitant]
     Active Substance: AMBROXOL HYDROCHLORIDE
     Indication: Productive cough
     Dosage: 60 MG
     Dates: start: 20120728
  10. ZONISAMIDE [Concomitant]
     Active Substance: ZONISAMIDE
     Indication: Parkinson^s disease
     Dosage: 50 MG
     Dates: start: 20120728, end: 20220906
  11. ALFACALCIDOL [Concomitant]
     Active Substance: ALFACALCIDOL
     Indication: Osteoporosis
     Dosage: 0.5 MCG
     Dates: start: 20190720, end: 20220830
  12. QUETIAPINE [Concomitant]
     Active Substance: QUETIAPINE
     Indication: Hallucination
     Dosage: 25 MG
     Dates: start: 20200215
  13. PRAMIPEXOLE DIHYDROCHLORIDE [Concomitant]
     Active Substance: PRAMIPEXOLE DIHYDROCHLORIDE
     Indication: Parkinson^s disease
     Dosage: 0.125 MG
     Dates: start: 20120728, end: 20220823
  14. RIVOTRIL [Concomitant]
     Active Substance: CLONAZEPAM
     Dosage: 1 MG
     Dates: start: 20200217, end: 20220830
  15. AMANTADINE HYDROCHLORIDE [Concomitant]
     Active Substance: AMANTADINE HYDROCHLORIDE
     Dosage: NOT PROVIDED
     Route: 048
  16. SILODOSIN [Concomitant]
     Active Substance: SILODOSIN
     Dosage: NOT PROVIDED
     Route: 048
  17. ZOLPIDEM TARTRATE [Concomitant]
     Active Substance: ZOLPIDEM TARTRATE
     Dosage: NOT PROVIDED
     Route: 048
  18. BROTIZOLAM [Concomitant]
     Active Substance: BROTIZOLAM
     Dosage: NOT PROVIDED
     Route: 048
  19. AMPICILLIN SODIUM\SULBACTAM SODIUM [Concomitant]
     Active Substance: AMPICILLIN SODIUM\SULBACTAM SODIUM
     Indication: Lung abscess
     Dates: start: 20220621, end: 20220705
  20. PIPERACILLIN SODIUM\TAZOBACTAM SODIUM [Concomitant]
     Active Substance: PIPERACILLIN SODIUM\TAZOBACTAM SODIUM
     Indication: Lung abscess
     Dates: start: 20220705, end: 20220719

REACTIONS (6)
  - Hypoglycaemia [Recovered/Resolved]
  - Respiratory failure [Unknown]
  - Lung abscess [Unknown]
  - Dysphagia [Unknown]
  - Condition aggravated [Unknown]
  - Off label use [Unknown]

NARRATIVE: CASE EVENT DATE: 20220501
